FAERS Safety Report 15211084 (Version 1)
Quarter: 2018Q3

REPORT INFORMATION
  Report Type: Spontaneous
  Country: US (occurrence: UM)
  Receive Date: 20180728
  Receipt Date: 20180728
  Transmission Date: 20181010
  Serious: Yes (Death)
  Sender: FDA-Public Use
  Company Number: US-JNJFOC-20180720511

PATIENT
  Age: 6 Month
  Sex: Male
  Weight: 8.62 kg

DRUGS (2)
  1. MOTRIN INFANTS [Suspect]
     Active Substance: IBUPROFEN
     Indication: RESPIRATORY DISORDER
     Dosage: 5 ML 6 HOURS
     Route: 048
     Dates: start: 20150602, end: 20150605
  2. MOTRIN INFANTS [Suspect]
     Active Substance: IBUPROFEN
     Indication: PYREXIA
     Dosage: 5 ML 6 HOURS
     Route: 048
     Dates: start: 20150602, end: 20150605

REACTIONS (3)
  - Overdose [Fatal]
  - Off label use [Fatal]
  - Pneumonia [Fatal]

NARRATIVE: CASE EVENT DATE: 20150602
